FAERS Safety Report 20913864 (Version 1)
Quarter: 2022Q2

REPORT INFORMATION
  Report Type: Spontaneous
  Country: CA (occurrence: None)
  Receive Date: 20220604
  Receipt Date: 20220604
  Transmission Date: 20220720
  Serious: Yes (Other)
  Sender: FDA-Public Use
  Company Number: CA-ROCHE-3104065

PATIENT
  Age: 42 Year
  Sex: Female

DRUGS (3)
  1. OCRELIZUMAB [Suspect]
     Active Substance: OCRELIZUMAB
     Indication: Product used for unknown indication
     Route: 065
  2. COMIRNATY [Suspect]
     Active Substance: TOZINAMERAN
     Indication: COVID-19 immunisation
     Route: 030
  3. VITAMIN B12 [Concomitant]
     Active Substance: CYANOCOBALAMIN
     Indication: Vitamin B12 deficiency

REACTIONS (12)
  - Confusional state [Unknown]
  - Hypoaesthesia [Unknown]
  - Burning sensation [Unknown]
  - Gait disturbance [Unknown]
  - Fatigue [Unknown]
  - Arthritis [Unknown]
  - Myalgia [Unknown]
  - Condition aggravated [Unknown]
  - Bone pain [Unknown]
  - Arthralgia [Unknown]
  - Vaccination site reaction [Unknown]
  - Bladder irritation [Unknown]
